FAERS Safety Report 5087767-7 (Version None)
Quarter: 2006Q3

REPORT INFORMATION
  Report Type: 
  Country: None (occurrence: None)
  Receive Date: 20060824
  Receipt Date: 20060606
  Transmission Date: 20061208
  Serious: Yes (Other)
  Sender: FDA-Public Use
  Company Number: GB-ROCHE-451943

PATIENT
  Age: 43 Year
  Sex: Female
  Weight: 119 kg

DRUGS (5)
  1. XENICAL [Suspect]
     Indication: OBESITY
     Route: 048
     Dates: start: 20060518, end: 20060602
  2. ATENOLOL [Concomitant]
     Dates: start: 20060315
  3. ESCITALOPRAM [Concomitant]
     Dates: start: 20060315
  4. BENDROFLUAZIDE [Concomitant]
     Dates: start: 20060315
  5. PHENYTOIN [Concomitant]
     Indication: EPILEPSY
     Dates: start: 19860615

REACTIONS (1)
  - EPILEPSY [None]
